FAERS Safety Report 5130092-6 (Version None)
Quarter: 2006Q4

REPORT INFORMATION
  Report Type: 
  Country: None (occurrence: None)
  Receive Date: 20061013
  Receipt Date: 20060929
  Transmission Date: 20070319
  Serious: Yes (Other)
  Sender: FDA-Public Use
  Company Number: S06-FRA-03802-01

PATIENT
  Sex: Female
  Weight: 2.57 kg

DRUGS (2)
  1. CITALOPRAM HYDROBROMIDE [Suspect]
  2. LEXOMIL (BROMAZEPAM) [Suspect]

REACTIONS (6)
  - CRYING [None]
  - DRUG EXPOSURE DURING PREGNANCY [None]
  - DYSTONIA [None]
  - FEELING ABNORMAL [None]
  - NEONATAL DISORDER [None]
  - SMALL FOR DATES BABY [None]
